FAERS Safety Report 5096547-8 (Version None)
Quarter: 2006Q3

REPORT INFORMATION
  Report Type: 
  Country: None (occurrence: None)
  Receive Date: 20060830
  Receipt Date: 20060817
  Transmission Date: 20061208
  Serious: Yes (Hospitalization)
  Sender: FDA-Public Use
  Company Number: 2006085999

PATIENT
  Age: 73 Year
  Sex: Female

DRUGS (4)
  1. TOLTERODINE TARTRATE [Suspect]
     Indication: MICTURITION URGENCY
     Dosage: 4 MG (4 MG, 1 IN 1 D); ORAL
     Route: 048
     Dates: start: 20060619
  2. ALL OTHER THERAPEUTIC PRODUCTS [Concomitant]
  3. FLUOXETINE [Concomitant]
  4. PLANTABEN (ISPAGHULA HUSK) [Concomitant]

REACTIONS (3)
  - DRUG INEFFECTIVE [None]
  - POOR QUALITY DRUG ADMINISTERED [None]
  - VENOUS OCCLUSION [None]
